FAERS Safety Report 19598030 (Version 1)
Quarter: 2021Q3

REPORT INFORMATION
  Report Type: Spontaneous
  Country: US (occurrence: US)
  Receive Date: 20210722
  Receipt Date: 20210722
  Transmission Date: 20211014
  Serious: Yes (Hospitalization, Other)
  Sender: FDA-Public Use
  Company Number: US-OTSUKA-2018_019675

PATIENT
  Age: 36 Year
  Sex: Male

DRUGS (3)
  1. ABILIFY [Suspect]
     Active Substance: ARIPIPRAZOLE
     Indication: MAJOR DEPRESSION
     Dosage: UNK
     Route: 065
     Dates: start: 2012, end: 2014
  2. ABILIFY [Suspect]
     Active Substance: ARIPIPRAZOLE
     Indication: BIPOLAR DISORDER
  3. ABILIFY [Suspect]
     Active Substance: ARIPIPRAZOLE
     Indication: DEPRESSION

REACTIONS (20)
  - Intentional self-injury [Unknown]
  - Gambling disorder [Recovered/Resolved]
  - Economic problem [Unknown]
  - Headache [Unknown]
  - Suicide attempt [Unknown]
  - Hyperphagia [Unknown]
  - Mania [Unknown]
  - Palpitations [Unknown]
  - Anxiety [Unknown]
  - Eating disorder [Recovered/Resolved]
  - Abdominal discomfort [Unknown]
  - Compulsive shopping [Recovered/Resolved]
  - Obsessive-compulsive disorder [Unknown]
  - Dizziness [Unknown]
  - Hypersexuality [Unknown]
  - Suicidal ideation [Unknown]
  - Compulsive sexual behaviour [Recovered/Resolved]
  - Insomnia [Unknown]
  - Agitation [Unknown]
  - Tachycardia [Unknown]

NARRATIVE: CASE EVENT DATE: 2012
